FAERS Safety Report 23124550 (Version 1)
Quarter: 2023Q4

REPORT INFORMATION
  Report Type: Spontaneous
  Country: US (occurrence: US)
  Receive Date: 20231030
  Receipt Date: 20231030
  Transmission Date: 20240110
  Serious: No
  Sender: FDA-Public Use
  Company Number: US-OPELLA-2023OHG010243

PATIENT

DRUGS (1)
  1. COLLOIDAL OATMEAL [Suspect]
     Active Substance: OATMEAL
     Indication: Eczema

REACTIONS (2)
  - Drug ineffective [Unknown]
  - No adverse event [Unknown]
